FAERS Safety Report 16079904 (Version 2)
Quarter: 2020Q1

REPORT INFORMATION
  Report Type: Spontaneous
  Country: CA (occurrence: CA)
  Receive Date: 20190315
  Receipt Date: 20200310
  Transmission Date: 20200409
  Serious: Yes (Other)
  Sender: FDA-Public Use
  Company Number: CA-SAMSUNG BIOEPIS-SB-2019-06233

PATIENT
  Age: 35 Year
  Sex: Female

DRUGS (5)
  1. FOLIC ACID. [Concomitant]
     Active Substance: FOLIC ACID
     Indication: PRODUCT USED FOR UNKNOWN INDICATION
     Route: 065
  2. INFLIXIMAB [Suspect]
     Active Substance: INFLIXIMAB
     Indication: COLITIS ULCERATIVE
     Route: 042
  3. ASACOL [Concomitant]
     Active Substance: MESALAMINE
     Indication: PRODUCT USED FOR UNKNOWN INDICATION
     Dosage: TABLET (ENTERIC COATED)
     Route: 048
  4. METHOTREXATE. [Concomitant]
     Active Substance: METHOTREXATE
     Indication: PRODUCT USED FOR UNKNOWN INDICATION
     Route: 048
  5. ASACOL [Concomitant]
     Active Substance: MESALAMINE
     Dosage: TABLET (ENTERIC COATED)
     Route: 048

REACTIONS (7)
  - Mean cell haemoglobin increased [Unknown]
  - Weight decreased [Unknown]
  - Off label use [Unknown]
  - Condition aggravated [Unknown]
  - Red blood cell count decreased [Unknown]
  - Product use issue [Unknown]
  - Weight increased [Unknown]
